FAERS Safety Report 18365323 (Version 3)
Quarter: 2022Q4

REPORT INFORMATION
  Report Type: Other
  Country: IT (occurrence: IT)
  Receive Date: 20201009
  Receipt Date: 20221209
  Transmission Date: 20230113
  Serious: Yes (Hospitalization, Other)
  Sender: FDA-Public Use
  Company Number: IT-ACCORD-201883

PATIENT

DRUGS (7)
  1. BUSULFAN [Suspect]
     Active Substance: BUSULFAN
     Indication: Acute myeloid leukaemia
     Dosage: 3.2 MG/KG DAYS -5, -4, -3
     Route: 065
  2. BUSULFAN [Suspect]
     Active Substance: BUSULFAN
     Indication: Bone marrow conditioning regimen
  3. BUSULFAN [Suspect]
     Active Substance: BUSULFAN
     Indication: Allogenic stem cell transplantation
  4. FLUDARABINE [Suspect]
     Active Substance: FLUDARABINE PHOSPHATE
     Indication: Acute myeloid leukaemia
     Dosage: 50 MG/M2, QD DAYS -5, -4, -3
     Route: 065
  5. FLUDARABINE [Suspect]
     Active Substance: FLUDARABINE PHOSPHATE
     Indication: Bone marrow conditioning regimen
  6. THIOTEPA [Suspect]
     Active Substance: THIOTEPA
     Indication: Acute myeloid leukaemia
     Dosage: 5 MG/KG DAYS -7, -6
     Route: 065
  7. THIOTEPA [Suspect]
     Active Substance: THIOTEPA
     Indication: Bone marrow conditioning regimen

REACTIONS (9)
  - Nocardiosis [Recovered/Resolved]
  - Pyrexia [Recovered/Resolved]
  - Neutropenia [Unknown]
  - Chest pain [Recovered/Resolved]
  - Pneumonia [Recovered/Resolved]
  - Pancytopenia [Recovered/Resolved]
  - Pneumonia bacterial [Recovered/Resolved]
  - Lung abscess [Unknown]
  - Obliterative bronchiolitis [Unknown]
